FAERS Safety Report 16965730 (Version 2)
Quarter: 2020Q1

REPORT INFORMATION
  Report Type: Spontaneous
  Country: GB (occurrence: GB)
  Receive Date: 20191028
  Receipt Date: 20200120
  Transmission Date: 20200409
  Serious: Yes (Other)
  Sender: FDA-Public Use
  Company Number: GB-PFIZER INC-2019464979

PATIENT
  Age: 68 Year
  Sex: Male
  Weight: 99 kg

DRUGS (5)
  1. TRANDOLAPRIL. [Concomitant]
     Active Substance: TRANDOLAPRIL
     Dosage: UNK UNK, UNK
  2. ASPIRIN [ACETYLSALICYLIC ACID] [Concomitant]
     Active Substance: ASPIRIN
     Dosage: LOW DOSE
  3. ROSUVASTATIN. [Concomitant]
     Active Substance: ROSUVASTATIN
     Dosage: UNK
  4. NEBIVOLOL. [Concomitant]
     Active Substance: NEBIVOLOL
     Dosage: UNK
  5. RAMIPRIL. [Suspect]
     Active Substance: RAMIPRIL
     Indication: HYPERTENSION
     Dosage: 10 MG, UNK
     Route: 048
     Dates: start: 201907, end: 20190928

REACTIONS (29)
  - Seizure [Unknown]
  - Fatigue [Unknown]
  - Anxiety [Unknown]
  - Sensory disturbance [Unknown]
  - Erectile dysfunction [Unknown]
  - Sleep disorder [Unknown]
  - Asthenia [Unknown]
  - Libido decreased [Unknown]
  - Muscle spasms [Unknown]
  - Ocular hyperaemia [Unknown]
  - Dizziness [Unknown]
  - Arthralgia [Unknown]
  - Gynaecomastia [Unknown]
  - Flushing [Unknown]
  - Cough [Unknown]
  - Hypoacusis [Unknown]
  - Malaise [Unknown]
  - Paraesthesia [Unknown]
  - Hyperhidrosis [Unknown]
  - Diarrhoea [Unknown]
  - Headache [Unknown]
  - Eye pruritus [Unknown]
  - Depressed mood [Unknown]
  - Dyspnoea [Unknown]
  - Feeling hot [Unknown]
  - Dry eye [Unknown]
  - Non-cardiac chest pain [Unknown]
  - Restlessness [Unknown]
  - Balance disorder [Unknown]
